FAERS Safety Report 19507977 (Version 1)
Quarter: 2021Q3

REPORT INFORMATION
  Report Type: Spontaneous
  Country: HU (occurrence: HU)
  Receive Date: 20210708
  Receipt Date: 20210708
  Transmission Date: 20211014
  Serious: Yes (Hospitalization)
  Sender: FDA-Public Use
  Company Number: HU-TASMAN PHARMA, INC.-2021TSM00045

PATIENT
  Age: 29 Year
  Sex: Male

DRUGS (11)
  1. ZUCLOPENTHIXOL [Concomitant]
     Active Substance: ZUCLOPENTHIXOL
     Indication: SCHIZOPHRENIA
     Dosage: ZUCLOPENTHIXOL TABLETS (3 X 10 MG AND THEN 2 X 10 MG)
     Route: 065
     Dates: start: 2020
  2. CLOZAPINE. [Suspect]
     Active Substance: CLOZAPINE
     Indication: SCHIZOPHRENIA
     Dosage: 125 MG, 1X/DAY
     Route: 065
     Dates: start: 20210319
  3. CLOZAPINE. [Suspect]
     Active Substance: CLOZAPINE
     Dosage: 12.5 MG
     Route: 065
     Dates: start: 20200514
  4. CLOZAPINE. [Suspect]
     Active Substance: CLOZAPINE
     Dosage: 100 MG
     Route: 065
     Dates: start: 20200615
  5. CLOZAPINE. [Suspect]
     Active Substance: CLOZAPINE
     Dosage: 50 MG
     Route: 065
     Dates: start: 2020
  6. CLOZAPINE. [Suspect]
     Active Substance: CLOZAPINE
     Dosage: 75 MG
     Route: 065
     Dates: start: 20200511
  7. ZUCLOPENTHIXOL [Concomitant]
     Active Substance: ZUCLOPENTHIXOL
     Dosage: ZUCLOPENTHIXOL LONG?ACTING INJECTION (100 MG) X 2
     Route: 065
  8. CLOZAPINE. [Suspect]
     Active Substance: CLOZAPINE
     Dosage: 25 MG
     Route: 065
     Dates: start: 20200515
  9. VALPROIC ACID. [Concomitant]
     Active Substance: VALPROIC ACID
     Indication: SCHIZOPHRENIA
     Dosage: 900 MG, 1X/DAY
     Route: 065
  10. CLOZAPINE. [Suspect]
     Active Substance: CLOZAPINE
     Dosage: 37.5 MG
     Route: 065
     Dates: start: 20200516
  11. VALPROIC ACID. [Concomitant]
     Active Substance: VALPROIC ACID
     Dosage: 450 MG, 1X/DAY
     Route: 065

REACTIONS (1)
  - Withdrawal catatonia [Recovered/Resolved]
